FAERS Safety Report 21623228 (Version 1)
Quarter: 2022Q4

REPORT INFORMATION
  Report Type: Spontaneous
  Country: GB (occurrence: GB)
  Receive Date: 20221121
  Receipt Date: 20221121
  Transmission Date: 20230113
  Serious: Yes (Hospitalization)
  Sender: FDA-Public Use
  Company Number: GB-JUBILANT CADISTA PHARMACEUTICALS-2022JUB00435

PATIENT
  Age: 65 Year
  Sex: Female

DRUGS (1)
  1. OLANZAPINE [Suspect]
     Active Substance: OLANZAPINE
     Indication: Schizophrenia
     Dosage: 10 MG, 1X/DAY (NIGHTLY)

REACTIONS (2)
  - Eosinophilic myocarditis [Recovered/Resolved]
  - Rhabdomyolysis [Recovered/Resolved]
